FAERS Safety Report 10651900 (Version 1)
Quarter: 2014Q4

REPORT INFORMATION
  Report Type: Spontaneous
  Country: CA (occurrence: CA)
  Receive Date: 20141215
  Receipt Date: 20141215
  Transmission Date: 20150529
  Serious: Yes (Other)
  Sender: FDA-Public Use
  Company Number: CA-BAYER-2014-179548

PATIENT
  Age: 65 Year
  Sex: Male
  Weight: 67 kg

DRUGS (6)
  1. ABIRATERONE [Concomitant]
     Active Substance: ABIRATERONE
     Dosage: UNK
     Dates: start: 201408
  2. XOFIGO [Suspect]
     Active Substance: RADIUM RA-223 DICHLORIDE
     Dosage: FIRST ADMINISTRATION  (50KBQ/KG)
  3. XOFIGO [Suspect]
     Active Substance: RADIUM RA-223 DICHLORIDE
     Dosage: SECOND ADMINISTRATION
  4. XOFIGO [Suspect]
     Active Substance: RADIUM RA-223 DICHLORIDE
     Dosage: THIRD ADMINISTRATION
     Dates: start: 201408, end: 201408
  5. XOFIGO [Suspect]
     Active Substance: RADIUM RA-223 DICHLORIDE
     Dosage: FIFTH ADMINISTRATION
     Dates: start: 201411, end: 201411
  6. XOFIGO [Suspect]
     Active Substance: RADIUM RA-223 DICHLORIDE
     Dosage: FOURTH ADMINISTRATION

REACTIONS (4)
  - Arthralgia [None]
  - Skin hyperpigmentation [Recovering/Resolving]
  - Thrombocytopenia [None]
  - Prostatic specific antigen increased [None]

NARRATIVE: CASE EVENT DATE: 2014
